FAERS Safety Report 7851525-8 (Version None)
Quarter: 2011Q4

REPORT INFORMATION
  Report Type: 
  Country: None (occurrence: None)
  Receive Date: 20111026
  Receipt Date: 20111019
  Transmission Date: 20120403
  Serious: Yes (Other)
  Sender: FDA-Public Use
  Company Number: GB-ROCHE-1002771

PATIENT
  Sex: Female

DRUGS (6)
  1. FOSAMAX [Concomitant]
     Indication: OSTEOPOROSIS PROPHYLAXIS
  2. ACTEMRA [Suspect]
     Indication: RHEUMATOID ARTHRITIS
     Route: 042
     Dates: start: 20090312, end: 20090827
  3. ESOMEPRAZOLE SODIUM [Concomitant]
     Indication: PROPHYLAXIS AGAINST GASTROINTESTINAL ULCER
  4. ADCAL-D3 [Concomitant]
     Indication: OSTEOPOROSIS PROPHYLAXIS
     Route: 048
  5. PREDNISONE [Concomitant]
     Indication: RHEUMATOID ARTHRITIS
     Route: 048
  6. LEVOTHYROXINE SODIUM [Concomitant]
     Indication: PARATHYROIDECTOMY

REACTIONS (2)
  - HYPOPHYSITIS [None]
  - WEIGHT INCREASED [None]
